FAERS Safety Report 10486092 (Version 2)
Quarter: 2015Q1

REPORT INFORMATION
  Report Type: Spontaneous
  Country: US (occurrence: None)
  Receive Date: 20140929
  Receipt Date: 20150311
  Transmission Date: 20150720
  Serious: Yes (Life-Threatening, Other)
  Sender: FDA-Public Use
  Company Number: 1713747-2014-999155

PATIENT
  Age: 49 Year
  Sex: Female

DRUGS (17)
  1. 0.9% SODIUM CHLORIDE [Suspect]
     Active Substance: SODIUM CHLORIDE
     Indication: CHRONIC KIDNEY DISEASE
     Dosage: HEMODIALYSIS
     Dates: start: 20140725
  2. BLOODLINES [Concomitant]
  3. COREG [Concomitant]
     Active Substance: CARVEDILOL
  4. OMNICEF [Concomitant]
     Active Substance: CEFDINIR
  5. ZESTRIL [Concomitant]
     Active Substance: LISINOPRIL
  6. PREGABALIN. [Concomitant]
     Active Substance: PREGABALIN
  7. LEVEMIR [Concomitant]
     Active Substance: INSULIN DETEMIR
  8. CATAPRES [Concomitant]
     Active Substance: CLONIDINE HYDROCHLORIDE
  9. DIALYZERS [Concomitant]
  10. KEPPRA [Concomitant]
     Active Substance: LEVETIRACETAM
  11. FRESENIUS 2008K [Concomitant]
  12. PAMELOR [Concomitant]
     Active Substance: NORTRIPTYLINE HYDROCHLORIDE
  13. NOVOLIN [Concomitant]
     Active Substance: INSULIN HUMAN
  14. COLLECTIVE CONCENTRATES [Concomitant]
  15. CYMBALTA [Concomitant]
     Active Substance: DULOXETINE HYDROCHLORIDE
  16. FOLIC ACID/VIT.B/VIT.A (NEPHROCAPS) [Concomitant]
  17. AMBIEN [Concomitant]
     Active Substance: ZOLPIDEM TARTRATE

REACTIONS (5)
  - Cardio-respiratory arrest [None]
  - Hypotension [None]
  - Haemodialysis [None]
  - Dyspnoea [None]
  - Altered state of consciousness [None]

NARRATIVE: CASE EVENT DATE: 20140725
